FAERS Safety Report 25915049 (Version 2)
Quarter: 2025Q4

REPORT INFORMATION
  Report Type: Spontaneous
  Country: US (occurrence: US)
  Receive Date: 20251013
  Receipt Date: 20251202
  Transmission Date: 20260118
  Serious: Yes (Other)
  Sender: ACCORD
  Company Number: US-Accord-496135

PATIENT
  Age: 57 Year
  Sex: Female

DRUGS (39)
  1. DOCETAXEL [Suspect]
     Active Substance: DOCETAXEL
     Indication: Non-small cell lung cancer metastatic
     Dosage: NUMBER OF CYCLES: 1?FREQUENCY: EVERY THREE WEEKS
     Dates: start: 20220412, end: 20220412
  2. RAMUCIRUMAB [Suspect]
     Active Substance: RAMUCIRUMAB
     Indication: Non-small cell lung cancer metastatic
  3. DOCETAXEL [Suspect]
     Active Substance: DOCETAXEL
     Indication: Non-small cell lung cancer metastatic
  4. FLUOROURACIL\LEUCOVORIN CALCIUM\OXALIPLATIN [Concomitant]
     Active Substance: FLUOROURACIL\LEUCOVORIN CALCIUM\OXALIPLATIN
     Indication: Colon cancer
     Dates: start: 2015
  5. DOCETAXEL [Suspect]
     Active Substance: DOCETAXEL
     Indication: Non-small cell lung cancer metastatic
     Dosage: NUMBER OF CYCLES: 2?FREQUENCY: EVERY THREE WEEKS
     Dates: start: 20220503, end: 20220503
  6. DOCETAXEL [Suspect]
     Active Substance: DOCETAXEL
     Indication: Non-small cell lung cancer metastatic
     Dosage: NUMBER OF CYCLES: 3?FREQUENCY: EVERY THREE WEEKS
     Dates: start: 20220524, end: 20220524
  7. DOCETAXEL [Suspect]
     Active Substance: DOCETAXEL
     Indication: Non-small cell lung cancer metastatic
     Dosage: NUMBER OF CYCLES: 4?FREQUENCY: EVERY THREE WEEKS
     Dates: start: 20220614, end: 20220614
  8. DOCETAXEL [Suspect]
     Active Substance: DOCETAXEL
     Indication: Non-small cell lung cancer metastatic
     Dosage: NUMBER OF CYCLES: 5?FREQUENCY: EVERY THREE WEEKS
     Dates: start: 20220705, end: 20220705
  9. DOCETAXEL [Suspect]
     Active Substance: DOCETAXEL
     Indication: Non-small cell lung cancer metastatic
     Dosage: NUMBER OF CYCLES: 6?FREQUENCY: EVERY THREE WEEKS
     Dates: start: 20220726, end: 20220726
  10. DOCETAXEL [Suspect]
     Active Substance: DOCETAXEL
     Indication: Non-small cell lung cancer metastatic
     Dosage: NUMBER OF CYCLES: 7?FREQUENCY: EVERY THREE WEEKS
     Dates: start: 20220816, end: 20220816
  11. DOCETAXEL [Suspect]
     Active Substance: DOCETAXEL
     Indication: Non-small cell lung cancer metastatic
     Dosage: NUMBER OF CYCLES: 8?FREQUENCY: EVERY THREE WEEKS
     Dates: start: 20220906, end: 20220906
  12. DOCETAXEL [Suspect]
     Active Substance: DOCETAXEL
     Indication: Non-small cell lung cancer metastatic
     Dosage: NUMBER OF CYCLES: 9?FREQUENCY: EVERY THREE WEEKS
     Dates: start: 20220927, end: 20220927
  13. DOCETAXEL [Suspect]
     Active Substance: DOCETAXEL
     Indication: Non-small cell lung cancer metastatic
     Dosage: NUMBER OF CYCLES: 10?FREQUENCY: EVERY THREE WEEKS
     Dates: start: 20221018, end: 20221018
  14. DOCETAXEL [Suspect]
     Active Substance: DOCETAXEL
     Indication: Non-small cell lung cancer metastatic
     Dosage: NUMBER OF CYCLES: 11?FREQUENCY: EVERY THREE WEEKS
     Dates: start: 20221108, end: 20221108
  15. DOCETAXEL [Suspect]
     Active Substance: DOCETAXEL
     Indication: Non-small cell lung cancer metastatic
     Dosage: NUMBER OF CYCLES: 12?FREQUENCY: EVERY THREE WEEKS
     Dates: start: 20221129, end: 20221129
  16. DOCETAXEL [Suspect]
     Active Substance: DOCETAXEL
     Indication: Non-small cell lung cancer metastatic
     Dosage: NUMBER OF CYCLES: 13?FREQUENCY: EVERY THREE WEEKS
     Dates: start: 20221220, end: 20221220
  17. DOCETAXEL [Suspect]
     Active Substance: DOCETAXEL
     Indication: Non-small cell lung cancer metastatic
     Dosage: NUMBER OF CYCLES: 14?FREQUENCY: EVERY THREE WEEKS
     Dates: start: 20230110, end: 20230110
  18. DOCETAXEL [Suspect]
     Active Substance: DOCETAXEL
     Indication: Non-small cell lung cancer metastatic
     Dosage: NUMBER OF CYCLES: 15?FREQUENCY: EVERY THREE WEEKS
     Dates: start: 20230131, end: 20230131
  19. DOCETAXEL [Suspect]
     Active Substance: DOCETAXEL
     Indication: Non-small cell lung cancer metastatic
     Dosage: NUMBER OF CYCLES: 16?FREQUENCY: EVERY THREE WEEKS
     Dates: start: 20230221, end: 20230221
  20. DOCETAXEL [Suspect]
     Active Substance: DOCETAXEL
     Indication: Non-small cell lung cancer metastatic
     Dosage: NUMBER OF CYCLES: 17?FREQUENCY: EVERY THREE WEEKS
     Dates: start: 20230314, end: 20230314
  21. DOCETAXEL [Suspect]
     Active Substance: DOCETAXEL
     Indication: Non-small cell lung cancer metastatic
     Dosage: NUMBER OF CYCLES: 18?FREQUENCY: EVERY THREE WEEKS
     Dates: start: 20230404, end: 20230404
  22. DOCETAXEL [Suspect]
     Active Substance: DOCETAXEL
     Indication: Non-small cell lung cancer metastatic
     Dosage: NUMBER OF CYCLES: 19?FREQUENCY: EVERY THREE WEEKS
     Dates: start: 20230425, end: 20230425
  23. DOCETAXEL [Suspect]
     Active Substance: DOCETAXEL
     Indication: Non-small cell lung cancer metastatic
     Dosage: NUMBER OF CYCLES: 20?FREQUENCY: EVERY THREE WEEKS
     Dates: start: 20230516, end: 20230516
  24. DOCETAXEL [Suspect]
     Active Substance: DOCETAXEL
     Indication: Non-small cell lung cancer metastatic
     Dosage: NUMBER OF CYCLES: 21?FREQUENCY: EVERY THREE WEEKS
     Dates: start: 20230606, end: 20230606
  25. DOCETAXEL [Suspect]
     Active Substance: DOCETAXEL
     Indication: Non-small cell lung cancer metastatic
     Dosage: NUMBER OF CYCLES: 22?FREQUENCY: EVERY THREE WEEKS
     Dates: start: 20230627, end: 20230627
  26. DOCETAXEL [Suspect]
     Active Substance: DOCETAXEL
     Indication: Non-small cell lung cancer metastatic
     Dosage: NUMBER OF CYCLES: 23?FREQUENCY: EVERY THREE WEEKS
     Dates: start: 20230718, end: 20230718
  27. DOCETAXEL [Suspect]
     Active Substance: DOCETAXEL
     Indication: Non-small cell lung cancer metastatic
     Dosage: NUMBER OF CYCLES: 24?FREQUENCY: EVERY THREE WEEKS
     Dates: start: 20230809, end: 20230809
  28. DOCETAXEL [Suspect]
     Active Substance: DOCETAXEL
     Indication: Non-small cell lung cancer metastatic
     Dosage: NUMBER OF CYCLES: 25?FREQUENCY: EVERY THREE WEEKS
     Dates: start: 20230905, end: 20230905
  29. DOCETAXEL [Suspect]
     Active Substance: DOCETAXEL
     Indication: Non-small cell lung cancer metastatic
     Dosage: NUMBER OF CYCLES: 26?FREQUENCY: EVERY THREE WEEKS
     Dates: start: 20230926, end: 20230926
  30. DOCETAXEL [Suspect]
     Active Substance: DOCETAXEL
     Indication: Non-small cell lung cancer metastatic
     Dosage: NUMBER OF CYCLES: 27?FREQUENCY: EVERY THREE WEEKS
     Dates: start: 20231017, end: 20231017
  31. DOCETAXEL [Suspect]
     Active Substance: DOCETAXEL
     Indication: Non-small cell lung cancer metastatic
     Dosage: NUMBER OF CYCLES: 28?FREQUENCY: EVERY THREE WEEKS
     Dates: start: 20231107, end: 20231107
  32. DOCETAXEL [Suspect]
     Active Substance: DOCETAXEL
     Indication: Non-small cell lung cancer metastatic
     Dosage: NUMBER OF CYCLES: 29?FREQUENCY: EVERY THREE WEEKS
     Dates: start: 20231128, end: 20231128
  33. DOCETAXEL [Suspect]
     Active Substance: DOCETAXEL
     Indication: Non-small cell lung cancer metastatic
     Dosage: NUMBER OF CYCLES: 30?FREQUENCY: EVERY THREE WEEKS
     Dates: start: 20231219, end: 20231219
  34. DOCETAXEL [Suspect]
     Active Substance: DOCETAXEL
     Indication: Non-small cell lung cancer metastatic
     Dosage: NUMBER OF CYCLES: 31?FREQUENCY: EVERY THREE WEEKS
     Dates: start: 20240109, end: 20240109
  35. DOCETAXEL [Suspect]
     Active Substance: DOCETAXEL
     Indication: Non-small cell lung cancer metastatic
     Dosage: NUMBER OF CYCLES: 32?FREQUENCY: EVERY THREE WEEKS
     Dates: start: 20240130, end: 20240130
  36. DOCETAXEL [Suspect]
     Active Substance: DOCETAXEL
     Indication: Non-small cell lung cancer metastatic
     Dosage: NUMBER OF CYCLES: 33?FREQUENCY: EVERY THREE WEEKS
     Dates: start: 20240220, end: 20240220
  37. DOCETAXEL [Suspect]
     Active Substance: DOCETAXEL
     Indication: Non-small cell lung cancer metastatic
     Dosage: NUMBER OF CYCLES: 34?FREQUENCY: EVERY THREE WEEKS
     Dates: start: 20240312, end: 20240312
  38. DOCETAXEL [Suspect]
     Active Substance: DOCETAXEL
     Indication: Non-small cell lung cancer metastatic
     Dosage: NUMBER OF CYCLES: 35?FREQUENCY: EVERY THREE WEEKS
     Dates: start: 20240402, end: 20240402
  39. DOCETAXEL [Suspect]
     Active Substance: DOCETAXEL
     Indication: Non-small cell lung cancer metastatic
     Dosage: NUMBER OF CYCLES: 36?FREQUENCY: EVERY THREE WEEKS
     Dates: start: 20240423, end: 20240423

REACTIONS (3)
  - Lacrimation increased [Not Recovered/Not Resolved]
  - Lacrimal structure injury [Not Recovered/Not Resolved]
  - Dacryostenosis acquired [Not Recovered/Not Resolved]

NARRATIVE: CASE EVENT DATE: 20220401
